FAERS Safety Report 8708923 (Version 2)
Quarter: 2013Q4

REPORT INFORMATION
  Report Type: Spontaneous
  Country: US (occurrence: US)
  Receive Date: 20120806
  Receipt Date: 20131101
  Transmission Date: 20140711
  Serious: No
  Sender: FDA-Public Use
  Company Number: US-009507513-2012SP025015

PATIENT
  Age: 75 Year
  Sex: Female
  Weight: 53.52 kg

DRUGS (3)
  1. AFRIN [Suspect]
     Indication: PRODUCT USED FOR UNKNOWN INDICATION
     Dosage: UNK UNK, ONCE
     Route: 045
     Dates: start: 201203
  2. AFRIN [Suspect]
     Indication: MEDICAL OBSERVATION
  3. LEVOTHROID [Concomitant]
     Indication: AUTOIMMUNE THYROIDITIS
     Dosage: UNK UNK, UNKNOWN

REACTIONS (1)
  - Nasal discomfort [Unknown]
